FAERS Safety Report 5306661-7 (Version None)
Quarter: 2007Q2

REPORT INFORMATION
  Report Type: 
  Country: None (occurrence: None)
  Receive Date: 20070424
  Receipt Date: 20070413
  Transmission Date: 20071010
  Serious: Yes (Other)
  Sender: FDA-Public Use
  Company Number: JP-PFIZER INC-2007030169

PATIENT
  Age: 33 Year
  Sex: Male

DRUGS (7)
  1. VFEND [Suspect]
     Indication: INFECTION PROPHYLAXIS
     Dosage: DAILY DOSE:300MG
     Route: 048
     Dates: start: 20070119, end: 20070131
  2. ENDOXAN [Suspect]
     Indication: ACUTE LYMPHOCYTIC LEUKAEMIA
     Dosage: DAILY DOSE:3000MG
     Route: 042
     Dates: start: 20061101, end: 20070101
  3. ZOVIRAX [Suspect]
     Indication: INFECTION
     Dosage: DAILY DOSE:1000MG
     Route: 048
     Dates: start: 20070120, end: 20070125
  4. BAKTAR [Suspect]
     Route: 048
     Dates: start: 20061101, end: 20070301
  5. LEVOFLOXACIN [Suspect]
     Indication: INFECTION PROPHYLAXIS
     Dosage: DAILY DOSE:300MG
     Route: 048
     Dates: start: 20061101, end: 20070301
  6. GASTER [Suspect]
     Dosage: DAILY DOSE:400MG
     Route: 048
     Dates: start: 20061101, end: 20070301
  7. MUCOSTA [Suspect]
     Dosage: DAILY DOSE:300MG
     Route: 048
     Dates: start: 20061101, end: 20070301

REACTIONS (1)
  - BLOOD FIBRINOGEN DECREASED [None]
